FAERS Safety Report 5529997-3 (Version None)
Quarter: 2007Q4

REPORT INFORMATION
  Report Type: 
  Country: None (occurrence: None)
  Receive Date: 20071127
  Receipt Date: 20071116
  Transmission Date: 20080405
  Serious: Yes (Other)
  Sender: FDA-Public Use
  Company Number: 2007S1000215

PATIENT
  Age: 17 Year
  Sex: Female
  Weight: 77.2 kg

DRUGS (12)
  1. INOMAX [Suspect]
     Indication: SICKLE CELL ANAEMIA
     Dosage: 80 PPM; CONT; INH, 40 PPM; CONT; INH, 6 ML; CONT; INH
     Route: 055
     Dates: start: 20070824, end: 20070824
  2. INOMAX [Suspect]
     Indication: SICKLE CELL ANAEMIA
     Dosage: 80 PPM; CONT; INH, 40 PPM; CONT; INH, 6 ML; CONT; INH
     Route: 055
     Dates: start: 20070824, end: 20070824
  3. INOMAX [Suspect]
     Indication: SICKLE CELL ANAEMIA
     Dosage: 80 PPM; CONT; INH, 40 PPM; CONT; INH, 6 ML; CONT; INH
     Route: 055
     Dates: start: 20070824, end: 20070827
  4. HYDROXYUREA [Concomitant]
  5. FOLIC ACID [Concomitant]
  6. NALOXONE [Concomitant]
  7. MORPHINE [Concomitant]
  8. CEFTRIAXONE [Concomitant]
  9. AZITHROMYCIN [Concomitant]
  10. SENNA [Concomitant]
  11. DIPHENDRAMINE EXPECTORANT [Concomitant]
  12. KETOROLAC [Concomitant]

REACTIONS (2)
  - ACUTE CHEST SYNDROME [None]
  - LUNG CONSOLIDATION [None]
